FAERS Safety Report 6212941-3 (Version None)
Quarter: 2009Q2

REPORT INFORMATION
  Report Type: 
  Country: None (occurrence: None)
  Receive Date: 20090603
  Receipt Date: 20090527
  Transmission Date: 20091009
  Serious: Yes (Death)
  Sender: FDA-Public Use
  Company Number: US-NOVOPROD-287723

PATIENT
  Sex: Male
  Weight: 8.9 kg

DRUGS (1)
  1. NORDITROPIN NORDIFLEX [Suspect]
     Indication: HYPOPITUITARISM
     Dosage: .1 MG, QD
     Route: 058
     Dates: start: 20071023

REACTIONS (5)
  - CONDITION AGGRAVATED [None]
  - CONGENITAL CENTRAL NERVOUS SYSTEM ANOMALY [None]
  - CONVULSION [None]
  - MICROCEPHALY [None]
  - SEPSIS [None]
